FAERS Safety Report 8076914-0 (Version None)
Quarter: 2012Q1

REPORT INFORMATION
  Report Type: 
  Country: None (occurrence: None)
  Receive Date: 20120127
  Receipt Date: 20120112
  Transmission Date: 20120608
  Serious: Yes (Hospitalization, Other)
  Sender: FDA-Public Use
  Company Number: PHHY2012PL002913

PATIENT
  Sex: Female
  Weight: 60 kg

DRUGS (4)
  1. AZATHIOPRINE [Suspect]
     Indication: RHEUMATOID ARTHRITIS
     Dosage: 50 G, UNK
     Route: 048
     Dates: start: 20110901, end: 20110901
  2. NEORAL [Suspect]
     Indication: RHEUMATOID ARTHRITIS
     Dosage: 100 MG, UNK
     Route: 048
     Dates: start: 20090101, end: 20100101
  3. METHOTREXATE [Suspect]
     Indication: RHEUMATOID ARTHRITIS
     Dosage: 25 MG/WEEK
     Route: 048
     Dates: start: 20090101, end: 20090201
  4. SULFASALAZINE [Suspect]
     Indication: RHEUMATOID ARTHRITIS
     Dosage: 2 G, UNK
     Route: 048
     Dates: start: 20111001, end: 20111001

REACTIONS (3)
  - DERMATITIS ALLERGIC [None]
  - RENAL HYPERTENSION [None]
  - HORMONE LEVEL ABNORMAL [None]
